FAERS Safety Report 5476598-1 (Version None)
Quarter: 2007Q4

REPORT INFORMATION
  Report Type: 
  Country: None (occurrence: None)
  Receive Date: 20071004
  Receipt Date: 20070928
  Transmission Date: 20080405
  Serious: Yes (Other)
  Sender: FDA-Public Use
  Company Number: PHEH2007US11666

PATIENT
  Age: 62 Year
  Sex: Male

DRUGS (1)
  1. GLEEVEC [Suspect]
     Indication: LEUKAEMIA
     Dosage: 200 MG, BID
     Route: 048
     Dates: start: 20070601

REACTIONS (8)
  - ASTHENIA [None]
  - EYE HAEMORRHAGE [None]
  - FEELING ABNORMAL [None]
  - NAUSEA [None]
  - NOCTURIA [None]
  - OEDEMA PERIPHERAL [None]
  - POLYDIPSIA [None]
  - SWELLING FACE [None]
